FAERS Safety Report 4486417-8 (Version None)
Quarter: 2004Q4

REPORT INFORMATION
  Report Type: 
  Country: None (occurrence: None)
  Receive Date: 20041026
  Receipt Date: 20041026
  Transmission Date: 20050328
  Serious: Yes (Other)
  Sender: FDA-Public Use
  Company Number: None

PATIENT
  Age: 35 Year
  Sex: Male
  Weight: 47.6277 kg

DRUGS (5)
  1. TENOFOVIR [Suspect]
     Dosage: 300 MG PO QD
     Route: 048
     Dates: start: 20030325, end: 20031021
  2. COMBIVIR [Concomitant]
  3. KALETRA [Concomitant]
  4. WELLBUTRIN [Concomitant]
  5. TESTOSTERONE [Concomitant]

REACTIONS (3)
  - BLOOD CREATININE INCREASED [None]
  - BLOOD PHOSPHORUS INCREASED [None]
  - HAEMATURIA [None]
